FAERS Safety Report 19904550 (Version 1)
Quarter: 2021Q3

REPORT INFORMATION
  Report Type: Spontaneous
  Country: IT (occurrence: IT)
  Receive Date: 20210930
  Receipt Date: 20210930
  Transmission Date: 20211014
  Serious: Yes (Other)
  Sender: FDA-Public Use
  Company Number: IT-SLATE RUN PHARMACEUTICALS-21IT000696

PATIENT

DRUGS (1)
  1. AZITHROMYCIN USP [Suspect]
     Active Substance: AZITHROMYCIN
     Indication: PRODUCT USED FOR UNKNOWN INDICATION
     Dosage: 250/500 MILLIGRAM, TID
     Route: 048

REACTIONS (2)
  - Mycobacterium test positive [Unknown]
  - Prescribed underdose [Recovered/Resolved]
